FAERS Safety Report 11794174 (Version 1)
Quarter: 2015Q4

REPORT INFORMATION
  Report Type: Report from Study
  Country: DE (occurrence: DE)
  Receive Date: 20151202
  Receipt Date: 20151202
  Transmission Date: 20160305
  Serious: Yes (Death, Hospitalization)
  Sender: FDA-Public Use
  Company Number: DE-CELGENE-062-50794-11050912

PATIENT
  Age: 70 Year
  Sex: Female
  Weight: 80 kg

DRUGS (2)
  1. VIDAZA [Suspect]
     Active Substance: AZACITIDINE
     Indication: MYELODYSPLASTIC SYNDROME
     Dosage: 75 MILLIGRAM/SQ. METER
     Route: 041
     Dates: start: 20100823
  2. VALPROIC ACID. [Concomitant]
     Active Substance: VALPROIC ACID
     Indication: SUPPORTIVE CARE
     Route: 065
     Dates: start: 201008

REACTIONS (6)
  - General physical health deterioration [Recovered/Resolved]
  - General physical health deterioration [Recovered/Resolved]
  - Pyrexia [Recovered/Resolved]
  - Myelodysplastic syndrome [Fatal]
  - General physical health deterioration [Not Recovered/Not Resolved]
  - Febrile neutropenia [Recovered/Resolved]

NARRATIVE: CASE EVENT DATE: 20110210
